FAERS Safety Report 4616836-8 (Version None)
Quarter: 2005Q1

REPORT INFORMATION
  Report Type: 
  Country: None (occurrence: None)
  Receive Date: 20050321
  Receipt Date: 20050307
  Transmission Date: 20050727
  Serious: Yes (Other)
  Sender: FDA-Public Use
  Company Number: 2005044270

PATIENT
  Sex: Female

DRUGS (1)
  1. MINOXIDIL [Suspect]
     Dosage: TOPICAL
     Route: 061
     Dates: start: 20041101, end: 20050101

REACTIONS (6)
  - AKATHISIA [None]
  - CEREBELLAR INFARCTION [None]
  - COMPUTERISED TOMOGRAM ABNORMAL [None]
  - HEADACHE [None]
  - LACUNAR INFARCTION [None]
  - MOVEMENT DISORDER [None]
